FAERS Safety Report 5402017-7 (Version None)
Quarter: 2007Q3

REPORT INFORMATION
  Report Type: 
  Country: None (occurrence: None)
  Receive Date: 20070726
  Receipt Date: 20070718
  Transmission Date: 20080115
  Serious: Yes (Other)
  Sender: FDA-Public Use
  Company Number: 2007AL002378

PATIENT
  Age: 63 Year
  Sex: Female

DRUGS (6)
  1. GABAPENTIN [Suspect]
     Dosage: 100 MG;BID
  2. GABAPENTIN [Suspect]
  3. PREGABALIN [Concomitant]
  4. SIMVASTATIN [Concomitant]
  5. OXYBUTYNIN CHLORIDE [Concomitant]
  6. BACLOFEN [Concomitant]

REACTIONS (2)
  - DRUG INEFFECTIVE [None]
  - JAUNDICE [None]
